FAERS Safety Report 6573596-1 (Version None)
Quarter: 2010Q1

REPORT INFORMATION
  Report Type: 
  Country: None (occurrence: None)
  Receive Date: 20100208
  Receipt Date: 20100202
  Transmission Date: 20100710
  Serious: Yes (Hospitalization)
  Sender: FDA-Public Use
  Company Number: FR-SANOFI-AVENTIS-2010SA006243

PATIENT
  Age: 1 Day
  Sex: Female

DRUGS (3)
  1. APIDRA [Suspect]
     Route: 064
  2. LANTUS [Suspect]
     Route: 064
  3. SUBUTEX [Suspect]
     Route: 064

REACTIONS (3)
  - DRUG EXPOSURE DURING PREGNANCY [None]
  - TREMOR [None]
  - WITHDRAWAL SYNDROME [None]
